FAERS Safety Report 20118010 (Version 1)
Quarter: 2021Q4

REPORT INFORMATION
  Report Type: Spontaneous
  Country: None (occurrence: GB)
  Receive Date: 20211126
  Receipt Date: 20211126
  Transmission Date: 20220303
  Serious: No
  Sender: FDA-Public Use
  Company Number: GB-B.Braun Medical Inc.-2122356

PATIENT
  Age: 17 Year
  Sex: Female
  Weight: 55 kg

DRUGS (6)
  1. ACETAMINOPHEN [Suspect]
     Active Substance: ACETAMINOPHEN
  2. DOCETAXEL [Suspect]
     Active Substance: DOCETAXEL
  3. ONDANSETRON [Suspect]
     Active Substance: ONDANSETRON
  4. CHLORPHENIRAMINE MALEATE [Suspect]
     Active Substance: CHLORPHENIRAMINE MALEATE
  5. GEMCITABINE HYDROCHLORIDE [Suspect]
     Active Substance: GEMCITABINE HYDROCHLORIDE
  6. RAMUCIRUMAB [Suspect]
     Active Substance: RAMUCIRUMAB

REACTIONS (6)
  - Haemoptysis [Recovered/Resolved]
  - Sepsis [Recovered/Resolved]
  - Cough [Unknown]
  - Alanine aminotransferase increased [Unknown]
  - Pyrexia [Unknown]
  - Chest pain [Unknown]
